FAERS Safety Report 5492737-0 (Version None)
Quarter: 2007Q4

REPORT INFORMATION
  Report Type: 
  Country: None (occurrence: None)
  Receive Date: 20071023
  Receipt Date: 20071015
  Transmission Date: 20080405
  Serious: Yes (Other)
  Sender: FDA-Public Use
  Company Number: PHEH2007US07842

PATIENT
  Age: 59 Year

DRUGS (2)
  1. ZELNORM [Suspect]
     Dosage: UNK, UNK
     Route: 048
     Dates: start: 20031201, end: 20040501
  2. ANTIHYPERTENSIVES [Concomitant]

REACTIONS (2)
  - CEREBROVASCULAR ACCIDENT [None]
  - TRANSIENT ISCHAEMIC ATTACK [None]
